FAERS Safety Report 4444803-6 (Version None)
Quarter: 2004Q3

REPORT INFORMATION
  Report Type: 
  Country: None (occurrence: None)
  Receive Date: 20040907
  Receipt Date: 20040907
  Transmission Date: 20050211
  Serious: Yes (Other)
  Sender: FDA-Public Use
  Company Number: None

PATIENT
  Age: 57 Year
  Sex: Female

DRUGS (8)
  1. ENBREL [Suspect]
     Dosage: 25 MG SQ TWICE WEEKLY
     Route: 058
     Dates: start: 20011001
  2. TRAZOLONE [Concomitant]
  3. FLEXERIL [Concomitant]
  4. CELEBREX [Concomitant]
  5. K-TAB [Concomitant]
  6. ESTRATEST [Concomitant]
  7. VICODIN [Concomitant]
  8. LEVOXYL [Concomitant]

REACTIONS (1)
  - BREAST CANCER FEMALE [None]
